FAERS Safety Report 8966629 (Version 4)
Quarter: 2013Q1

REPORT INFORMATION
  Report Type: Report from Study
  Country: CA (occurrence: CA)
  Receive Date: 20121217
  Receipt Date: 20130212
  Transmission Date: 20140127
  Serious: Yes (Other)
  Sender: FDA-Public Use
  Company Number: CA-ABBOTT-12P-028-1022466-00

PATIENT
  Age: 21 Year
  Sex: Female
  Weight: 69.01 kg

DRUGS (4)
  1. HUMIRA [Suspect]
     Indication: CROHN^S DISEASE
     Route: 058
     Dates: start: 20120501
  2. HUMIRA [Suspect]
     Dates: start: 20130207
  3. AZATHIOPRINE [Concomitant]
  4. PREDNISONE [Concomitant]
     Dosage: FROM CONCEPTION FOR ABOUT 3 MONTHS

REACTIONS (1)
  - Stillbirth [Unknown]
